FAERS Safety Report 8486237-3 (Version None)
Quarter: 2012Q3

REPORT INFORMATION
  Report Type: 
  Country: None (occurrence: None)
  Receive Date: 20120703
  Receipt Date: 20120628
  Transmission Date: 20120928
  Serious: No
  Sender: FDA-Public Use
  Company Number: US-TEVA-345821USA

PATIENT
  Sex: Female

DRUGS (4)
  1. CELEXA [Concomitant]
     Route: 048
  2. SPRINTEC [Concomitant]
  3. PROVIGIL [Suspect]
  4. NUVIGIL [Suspect]
     Indication: INSOMNIA
     Dosage: EVERY AM
     Route: 048

REACTIONS (6)
  - DECREASED APPETITE [None]
  - ANXIETY [None]
  - DRUG INEFFECTIVE [None]
  - FEELING JITTERY [None]
  - HEADACHE [None]
  - SOMNOLENCE [None]
